FAERS Safety Report 15490278 (Version 12)
Quarter: 2019Q1

REPORT INFORMATION
  Report Type: Report from Study
  Country: US (occurrence: US)
  Receive Date: 20181011
  Receipt Date: 20190320
  Transmission Date: 20190417
  Serious: Yes (Other)
  Sender: FDA-Public Use
  Company Number: PHEH2018US043106

PATIENT
  Sex: Female
  Weight: 109.75 kg

DRUGS (4)
  1. COSENTYX [Suspect]
     Active Substance: SECUKINUMAB
     Dosage: 300 MG, QMO
     Route: 058
     Dates: start: 20180912
  2. METHOTREXATE. [Suspect]
     Active Substance: METHOTREXATE
     Indication: PRODUCT USED FOR UNKNOWN INDICATION
     Route: 065
  3. COSENTYX [Suspect]
     Active Substance: SECUKINUMAB
     Indication: PSORIATIC ARTHROPATHY
     Dosage: 300 MG, QMO
     Route: 058
     Dates: start: 201805
  4. COSENTYX [Suspect]
     Active Substance: SECUKINUMAB
     Dosage: 300 MG, QMO
     Route: 058
     Dates: start: 201810

REACTIONS (13)
  - Pneumonia [Unknown]
  - Ear disorder [Unknown]
  - Memory impairment [Unknown]
  - Genital burning sensation [Unknown]
  - Malaise [Unknown]
  - Pruritus [Recovered/Resolved]
  - Pruritus genital [Recovered/Resolved]
  - Psoriasis [Unknown]
  - Otorrhoea [Unknown]
  - Nasopharyngitis [Unknown]
  - Pyrexia [Unknown]
  - Respiratory tract congestion [Unknown]
  - Drug hypersensitivity [Unknown]
